FAERS Safety Report 6126270-X (Version None)
Quarter: 2009Q1

REPORT INFORMATION
  Report Type: 
  Country: None (occurrence: None)
  Receive Date: 20090320
  Receipt Date: 20090317
  Transmission Date: 20090719
  Serious: Yes (Life-Threatening, Hospitalization)
  Sender: FDA-Public Use
  Company Number: PHHY2009TR09672

PATIENT
  Age: 56 Year
  Sex: Female

DRUGS (19)
  1. FORMOTEROL FUMARATE [Suspect]
     Indication: ASTHMA
     Dosage: 20 UG
  2. FORMOTEROL FUMARATE [Suspect]
     Dosage: 2 X 12 UG
  3. THEOPHYLLINE [Suspect]
     Dosage: 400 MG
  4. QUINAPRIL HCL AND HYDROCHLOROTHIAZIDE [Concomitant]
     Dosage: 1X20/12.5 MG
  5. TRIMETAZIDINE [Concomitant]
     Dosage: 3 X 20 MG
  6. ISOSORBIDE MONONITRATE [Concomitant]
     Indication: HYPOTENSION
     Dosage: 1 X 50 MG
  7. ISOSORBIDE MONONITRATE [Concomitant]
     Dosage: 2 X 20
  8. TIOTROPIUM BROMIDE [Concomitant]
     Indication: ASTHMA
     Dosage: 1 X 18 UG
  9. MONTELUKAST SODIUM [Concomitant]
     Dosage: 1X5 MG PER DAY
  10. ASPIRIN [Concomitant]
     Dosage: 100 MG
  11. CLOPIDOGREL [Concomitant]
     Dosage: 75 MG, ONCE/SINGLE
  12. CLOPIDOGREL [Concomitant]
     Dosage: 300 MG
  13. ATORVASTATIN [Concomitant]
     Dosage: 10 MG, ONCE/SINGLE
  14. HEPARIN [Concomitant]
  15. IPRATROPIUM BROMIDE [Concomitant]
     Dosage: 20 UG/DAY
  16. SALAMOL (SALBUTAMOL SULFATE) [Concomitant]
     Dosage: 120 UG/DAY
  17. DIURETICS [Concomitant]
     Indication: DYSPNOEA
  18. NITRATES [Concomitant]
     Dosage: 200 UG
  19. DILTIAZEM [Concomitant]
     Dosage: 3 X 90 MG

REACTIONS (31)
  - ACUTE MYOCARDIAL INFARCTION [None]
  - ANGIOGRAM [None]
  - ARTERIOGRAM CORONARY ABNORMAL [None]
  - ARTERIOSCLEROSIS CORONARY ARTERY [None]
  - ASTHMA [None]
  - ATRIOVENTRICULAR BLOCK [None]
  - BLOOD PRESSURE DECREASED [None]
  - CARDIAC ARREST [None]
  - CARDIAC VENTRICULOGRAM LEFT [None]
  - CARDIOGENIC SHOCK [None]
  - CARDIOVERSION [None]
  - CHEST PAIN [None]
  - CONDITION AGGRAVATED [None]
  - CORONARY ARTERY DISEASE [None]
  - DYSPNOEA [None]
  - EJECTION FRACTION DECREASED [None]
  - ELECTROCARDIOGRAM ST SEGMENT ELEVATION [None]
  - HYPOKINESIA [None]
  - HYPOTENSION [None]
  - IMPLANTABLE DEFIBRILLATOR INSERTION [None]
  - INTRA-AORTIC BALLOON PLACEMENT [None]
  - MYOCARDIAL ISCHAEMIA [None]
  - PALLOR [None]
  - PERCUTANEOUS CORONARY INTERVENTION [None]
  - PERICARDIAL EFFUSION [None]
  - RESUSCITATION [None]
  - SINUS RHYTHM [None]
  - STENT PLACEMENT [None]
  - TROPONIN T INCREASED [None]
  - VASOSPASM [None]
  - VENTRICULAR FIBRILLATION [None]
